FAERS Safety Report 9412171 (Version 2)
Quarter: 2013Q4

REPORT INFORMATION
  Report Type: Report from Study
  Country: US (occurrence: US)
  Receive Date: 20130722
  Receipt Date: 20131025
  Transmission Date: 20140711
  Serious: Yes (Other)
  Sender: FDA-Public Use
  Company Number: US-ROCHE-1250842

PATIENT
  Sex: 0

DRUGS (4)
  1. BEVACIZUMAB [Suspect]
     Indication: GLIOMA
     Route: 065
  2. BEVACIZUMAB [Suspect]
     Dosage: SIX 28-DAY CYCLES, ON DAYS 8 AND 22
     Route: 065
  3. TEMOZOLOMIDE [Suspect]
     Indication: GLIOMA
     Route: 065
  4. TEMOZOLOMIDE [Suspect]
     Dosage: SIX 28-DAY CYCLES, ON DAYS 1-7
     Route: 065

REACTIONS (1)
  - Haematotoxicity [Unknown]
